FAERS Safety Report 7198044-2 (Version None)
Quarter: 2010Q4

REPORT INFORMATION
  Report Type: 
  Country: None (occurrence: None)
  Receive Date: 20101213
  Receipt Date: 20101202
  Transmission Date: 20110411
  Serious: Yes (Death, Hospitalization)
  Sender: FDA-Public Use
  Company Number: 2010120007

PATIENT
  Age: 11 Year
  Sex: Male

DRUGS (1)
  1. D-PENICILLAMINE [Suspect]
     Indication: HEPATO-LENTICULAR DEGENERATION
     Dosage: 750 MG (250 MG, 3 IN 1 D)

REACTIONS (7)
  - CARDIAC ARREST [None]
  - DYSKINESIA [None]
  - DYSTONIA [None]
  - PAIN [None]
  - PNEUMONIA [None]
  - SEPTIC ENCEPHALOPATHY [None]
  - TORTICOLLIS [None]
